FAERS Safety Report 11994383 (Version 2)
Quarter: 2016Q1

REPORT INFORMATION
  Report Type: Spontaneous
  Country: DE (occurrence: DE)
  Receive Date: 20160203
  Receipt Date: 20160225
  Transmission Date: 20160526
  Serious: Yes (Other)
  Sender: FDA-Public Use
  Company Number: DE-BAYER-2016-012350

PATIENT
  Age: 21 Year
  Sex: Female
  Weight: 56 kg

DRUGS (2)
  1. GADOVIST [Suspect]
     Active Substance: GADOBUTROL
     Indication: NUCLEAR MAGNETIC RESONANCE IMAGING
     Dosage: DAILY DOSE 6 L/MIN
     Route: 042
     Dates: start: 20160118
  2. GADOVIST [Suspect]
     Active Substance: GADOBUTROL
     Indication: TRANSIENT ISCHAEMIC ATTACK

REACTIONS (6)
  - Dyspnoea [Recovered/Resolved]
  - Tongue discolouration [Recovered/Resolved]
  - Chest pain [Recovered/Resolved]
  - Lip swelling [Recovered/Resolved]
  - Swollen tongue [Recovered/Resolved]
  - Respiration abnormal [Recovered/Resolved]

NARRATIVE: CASE EVENT DATE: 20160118
